FAERS Safety Report 4359554-6 (Version None)
Quarter: 2004Q2

REPORT INFORMATION
  Report Type: 
  Country: None (occurrence: None)
  Receive Date: 20040514
  Receipt Date: 20040514
  Transmission Date: 20050107
  Serious: Yes (Other)
  Sender: FDA-Public Use
  Company Number: None

PATIENT
  Sex: Male

DRUGS (15)
  1. HYDROCODONE BITARTRATE + ACETAMINOPHEN [Suspect]
     Indication: MIGRAINE
     Dosage: PO TID
     Route: 048
  2. BUTALBITAL ACETAMINOPHEN AND CAFFEINE [Suspect]
     Indication: SPINAL COLUMN STENOSIS
     Dosage: PO TID
     Route: 048
  3. COLACE [Concomitant]
  4. M.V.I. [Concomitant]
  5. NEURONTIN [Concomitant]
  6. VALTREX [Concomitant]
  7. SPORANOX [Concomitant]
  8. EFFEXOR XR [Concomitant]
  9. FLORINEF [Concomitant]
  10. FLEXERIL [Concomitant]
  11. PREDNISONE [Concomitant]
  12. PREVACID [Concomitant]
  13. ALBUTEROL [Concomitant]
  14. MIDODRINE HCL [Concomitant]
  15. BACTRIM [Concomitant]

REACTIONS (2)
  - DRUG INEFFECTIVE [None]
  - PHARMACEUTICAL PRODUCT COMPLAINT [None]
